FAERS Safety Report 23640748 (Version 2)
Quarter: 2024Q1

REPORT INFORMATION
  Report Type: Spontaneous
  Country: US (occurrence: US)
  Receive Date: 20240318
  Receipt Date: 20240327
  Transmission Date: 20240410
  Serious: Yes (Other)
  Sender: FDA-Public Use
  Company Number: US-BEH-2024169676

PATIENT
  Age: 40 Year
  Sex: Female
  Weight: 61.224 kg

DRUGS (2)
  1. HIZENTRA [Suspect]
     Active Substance: HUMAN IMMUNOGLOBULIN G
     Indication: Hypogammaglobulinaemia
     Dosage: 10 GRAM, QW
     Route: 058
     Dates: start: 202401, end: 20240319
  2. PROMETHAZINE [Concomitant]
     Active Substance: PROMETHAZINE HYDROCHLORIDE

REACTIONS (11)
  - Sinonasal obstruction [Unknown]
  - Malaise [Unknown]
  - Decreased appetite [Unknown]
  - Weight decreased [Unknown]
  - Dyspnoea [Unknown]
  - Nausea [Unknown]
  - Migraine [Unknown]
  - Anaphylactic reaction [Unknown]
  - Dysgeusia [Unknown]
  - Pharyngeal swelling [Unknown]
  - Eczema [Unknown]

NARRATIVE: CASE EVENT DATE: 20240101
